FAERS Safety Report 8497821 (Version 5)
Quarter: 2012Q4

REPORT INFORMATION
  Report Type: 
  Country: US (occurrence: US)
  Receive Date: 20120406
  Receipt Date: 20121128
  Transmission Date: 20130627
  Serious: Yes (Other)
  Sender: FDA-Public Use
  Company Number: US-PFIZER INC-2012083356

PATIENT
  Age: 63 Year
  Sex: Male
  Weight: 61.22 kg

DRUGS (8)
  1. LYRICA [Suspect]
     Indication: PAIN
     Dosage: 100 mg, 2x/day
     Route: 048
     Dates: start: 201202, end: 201202
  2. LYRICA [Suspect]
     Indication: NERVE COMPRESSION
     Dosage: 50 mg, 1x/day
     Route: 048
     Dates: start: 201202, end: 201203
  3. LYRICA [Suspect]
     Dosage: 75 mg, 2x/day
     Route: 048
     Dates: start: 201203, end: 201203
  4. LYRICA [Suspect]
     Dosage: 50 mg, 3x/day
     Route: 048
     Dates: start: 201203
  5. LYRICA [Suspect]
     Dosage: 75 mg, 3x/day
     Route: 048
     Dates: start: 201205
  6. METFORMIN [Concomitant]
     Indication: DIABETES
     Dosage: 1000 mg, UNK
  7. AMARYL [Concomitant]
     Indication: DIABETES
     Dosage: 4 mg, UNK
  8. LISINOPRIL [Concomitant]
     Indication: BLOOD PRESSURE HIGH
     Dosage: 10 mg, UNK

REACTIONS (12)
  - Pain in extremity [Not Recovered/Not Resolved]
  - Musculoskeletal pain [Not Recovered/Not Resolved]
  - Pain [Not Recovered/Not Resolved]
  - Pain [Not Recovered/Not Resolved]
  - Arthralgia [Not Recovered/Not Resolved]
  - Joint crepitation [Not Recovered/Not Resolved]
  - Constipation [Not Recovered/Not Resolved]
  - Drug ineffective [Unknown]
  - Hyperaesthesia [Not Recovered/Not Resolved]
  - Burning sensation [Not Recovered/Not Resolved]
  - Paraesthesia [Not Recovered/Not Resolved]
  - Irritability [Not Recovered/Not Resolved]
